FAERS Safety Report 9764056 (Version 1)
Quarter: 2013Q4

REPORT INFORMATION
  Report Type: Spontaneous
  Country: US (occurrence: US)
  Receive Date: 20131216
  Receipt Date: 20131216
  Transmission Date: 20140711
  Serious: No
  Sender: FDA-Public Use
  Company Number: US-BIOGENIDEC-2013BI110259

PATIENT
  Sex: Female

DRUGS (21)
  1. TECFIDERA [Suspect]
     Indication: MULTIPLE SCLEROSIS
     Route: 048
  2. TECFIDERA [Suspect]
     Indication: MULTIPLE SCLEROSIS
     Route: 048
  3. TECFIDERA [Suspect]
     Indication: MULTIPLE SCLEROSIS
     Route: 048
     Dates: start: 20131001
  4. CYMBALTA [Concomitant]
  5. HUMULIN R [Concomitant]
  6. CINNAMON [Concomitant]
  7. ASPIRIN [Concomitant]
  8. EQL IBUPROFEN [Concomitant]
  9. CVS VITAMIN E [Concomitant]
  10. COLACE-T [Concomitant]
  11. PRINIVIL [Concomitant]
  12. SOLU MEDROL [Concomitant]
  13. XANAX [Concomitant]
  14. ANTIVERT [Concomitant]
  15. GLUCOTROL [Concomitant]
  16. ZOLOFT [Concomitant]
  17. GLUCOPHAGE [Concomitant]
  18. LANTUS INSULIN [Concomitant]
  19. FENTANYL [Concomitant]
  20. MORPHINE SULFATE ER [Concomitant]
  21. SENOKOT S [Concomitant]

REACTIONS (6)
  - Fatigue [Unknown]
  - Depression [Unknown]
  - Nausea [Unknown]
  - Flushing [Unknown]
  - Vomiting [Unknown]
  - Diarrhoea [Unknown]
